FAERS Safety Report 17832464 (Version 1)
Quarter: 2020Q2

REPORT INFORMATION
  Report Type: Spontaneous
  Country: US (occurrence: US)
  Receive Date: 20200528
  Receipt Date: 20200528
  Transmission Date: 20200714
  Serious: No
  Sender: FDA-Public Use
  Company Number: US-CIPLA LTD.-2020US03213

PATIENT

DRUGS (3)
  1. DICLOFENAC [Suspect]
     Active Substance: DICLOFENAC
     Indication: PAIN IN EXTREMITY
     Dosage: UNK, TID
     Route: 061
     Dates: start: 201912
  2. DICLOFENAC [Suspect]
     Active Substance: DICLOFENAC
     Indication: ARTHRALGIA
     Dosage: UNK, PRN (ONLY USING IT ONLY WHEN ARMS HURT)
     Route: 061
  3. DICLOFENAC [Suspect]
     Active Substance: DICLOFENAC
     Dosage: UNK, NEW MEDICATION
     Route: 065

REACTIONS (4)
  - Treatment noncompliance [Unknown]
  - Drug ineffective for unapproved indication [Not Recovered/Not Resolved]
  - Product packaging issue [Unknown]
  - Off label use [Unknown]

NARRATIVE: CASE EVENT DATE: 201912
